FAERS Safety Report 12679078 (Version 2)
Quarter: 2016Q4

REPORT INFORMATION
  Report Type: Spontaneous
  Country: AU (occurrence: AU)
  Receive Date: 20160824
  Receipt Date: 20161108
  Transmission Date: 20170207
  Serious: Yes (Other)
  Sender: FDA-Public Use
  Company Number: AU-BIOGEN-2016BI00280980

PATIENT
  Age: 56 Year
  Sex: Male

DRUGS (1)
  1. TYSABRI [Suspect]
     Active Substance: NATALIZUMAB
     Indication: MULTIPLE SCLEROSIS
     Dosage: INFUSED OVER 1 HOUR
     Route: 042
     Dates: start: 201401

REACTIONS (4)
  - Expanded disability status scale score increased [Unknown]
  - Primary progressive multiple sclerosis [Unknown]
  - Subdural haematoma [Unknown]
  - Headache [Unknown]

NARRATIVE: CASE EVENT DATE: 20160727
